FAERS Safety Report 12656345 (Version 1)
Quarter: 2016Q3

REPORT INFORMATION
  Report Type: Spontaneous
  Country: US (occurrence: US)
  Receive Date: 20160816
  Receipt Date: 20160816
  Transmission Date: 20161109
  Serious: No
  Sender: FDA-Public Use
  Company Number: US-PERRIGO-15US008675

PATIENT
  Age: 59 Year
  Sex: Female
  Weight: 99.32 kg

DRUGS (3)
  1. MUCUS RELIEF [Concomitant]
     Active Substance: GUAIFENESIN
     Indication: SECRETION DISCHARGE
     Dosage: UNK
     Route: 065
     Dates: start: 20150819
  2. LORATADINE. [Suspect]
     Active Substance: LORATADINE
     Indication: RHINORRHOEA
     Dosage: 10 MG, ONCE AT 1200
     Route: 048
     Dates: start: 20150819, end: 20150819
  3. LORATADINE. [Suspect]
     Active Substance: LORATADINE
     Indication: HYPERSENSITIVITY
     Dosage: 10 MG, ONCE AT 1130
     Route: 048
     Dates: start: 20150819, end: 20150819

REACTIONS (2)
  - Extra dose administered [Recovered/Resolved]
  - No adverse event [Recovered/Resolved]

NARRATIVE: CASE EVENT DATE: 20150819
